FAERS Safety Report 5262519-3 (Version None)
Quarter: 2007Q1

REPORT INFORMATION
  Report Type: 
  Country: None (occurrence: None)
  Receive Date: 20070312
  Receipt Date: 20070302
  Transmission Date: 20070707
  Serious: Yes (Hospitalization)
  Sender: FDA-Public Use
  Company Number: 2007SE01226

PATIENT
  Age: 18185 Day
  Sex: Male

DRUGS (7)
  1. SEROQUEL [Suspect]
     Indication: SCHIZOPHRENIA
     Route: 048
     Dates: start: 20061006, end: 20061008
  2. SEROQUEL [Suspect]
     Route: 048
     Dates: start: 20061009, end: 20061023
  3. SEROQUEL [Suspect]
     Route: 048
     Dates: start: 20061024
  4. ZOPICLONE [Concomitant]
     Indication: INSOMNIA
     Route: 048
  5. LEVAXIN [Concomitant]
     Indication: HYPOTHYROIDISM
     Route: 048
  6. CORTISONE ACETATE [Concomitant]
     Indication: PITUITARY TUMOUR BENIGN
     Route: 048
  7. NEBIDO [Concomitant]
     Indication: PITUITARY TUMOUR BENIGN
     Route: 030

REACTIONS (1)
  - SCHIZOPHRENIA [None]
